FAERS Safety Report 4296558-6 (Version None)
Quarter: 2004Q1

REPORT INFORMATION
  Report Type: 
  Country: None (occurrence: None)
  Receive Date: 20040210
  Receipt Date: 20031104
  Transmission Date: 20041129
  Serious: No
  Sender: FDA-Public Use
  Company Number: 2003-109874-NL

PATIENT
  Age: 75 Year
  Sex: Male
  Weight: 66.7 kg

DRUGS (1)
  1. REMERON SOLTAB [Suspect]
     Indication: DEPRESSION
     Dosage: 30 MG DAILY ORAL
     Route: 048
     Dates: start: 20031028, end: 20031029

REACTIONS (1)
  - URINARY RETENTION [None]
